FAERS Safety Report 7743365-5 (Version None)
Quarter: 2011Q3

REPORT INFORMATION
  Report Type: 
  Country: None (occurrence: None)
  Receive Date: 20110912
  Receipt Date: 20110831
  Transmission Date: 20111222
  Serious: Yes (Other)
  Sender: FDA-Public Use
  Company Number: PHFR2011GB04748

PATIENT
  Sex: Male

DRUGS (2)
  1. CLOZAPINE [Suspect]
     Indication: PSYCHOTIC DISORDER
     Route: 048
     Dates: start: 20100908
  2. CLOZAPINE [Suspect]
     Indication: PARKINSON'S DISEASE

REACTIONS (3)
  - DISORIENTATION [None]
  - DECREASED APPETITE [None]
  - HAEMOGLOBIN DECREASED [None]
